FAERS Safety Report 24778722 (Version 1)
Quarter: 2024Q4

REPORT INFORMATION
  Report Type: Spontaneous
  Country: US (occurrence: None)
  Receive Date: 20241220
  Receipt Date: 20241220
  Transmission Date: 20250115
  Serious: Yes (Hospitalization)
  Sender: Public
  Company Number: None

PATIENT
  Age: 69 Year
  Sex: Female
  Weight: 281.1 kg

DRUGS (8)
  1. SACITUZUMAB GOVITECAN [Suspect]
     Active Substance: SACITUZUMAB GOVITECAN
  2. CISPLATIN [Suspect]
     Active Substance: CISPLATIN
  3. CHOLECALCIFEROL [Concomitant]
     Active Substance: CHOLECALCIFEROL
  4. MAGNESIUM CHLORIDE [Concomitant]
     Active Substance: MAGNESIUM CHLORIDE
  5. CYANOCOBALAMIN [Concomitant]
     Active Substance: CYANOCOBALAMIN
  6. VITAMIN D3 [Concomitant]
     Active Substance: CHOLECALCIFEROL
  7. IMODIUM [Concomitant]
     Active Substance: LOPERAMIDE HYDROCHLORIDE
  8. PROCHLORPERAZINE [Concomitant]
     Active Substance: PROCHLORPERAZINE

REACTIONS (19)
  - Nausea [None]
  - Vomiting [None]
  - Thrombocytopenia [None]
  - Neutropenia [None]
  - Colitis [None]
  - Oesophageal candidiasis [None]
  - Colitis [None]
  - Pharyngeal inflammation [None]
  - Vulvovaginal inflammation [None]
  - Vulvovaginal inflammation [None]
  - Hepatic steatosis [None]
  - Diarrhoea [None]
  - Dehydration [None]
  - Fatigue [None]
  - Urinary retention [None]
  - Acute kidney injury [None]
  - White blood cell count decreased [None]
  - Hepatomegaly [None]
  - Haemoglobin decreased [None]

NARRATIVE: CASE EVENT DATE: 20241207
